FAERS Safety Report 8953132 (Version 3)
Quarter: 2014Q1

REPORT INFORMATION
  Report Type: Report from Study
  Country: JP (occurrence: JP)
  Receive Date: 20121206
  Receipt Date: 20140312
  Transmission Date: 20141002
  Serious: Yes (Hospitalization)
  Sender: FDA-Public Use
  Company Number: JP-009507513-1207JPN012589

PATIENT
  Age: 67 Year
  Sex: Female

DRUGS (8)
  1. ZOLINZA CAPSULES 100MG [Suspect]
     Indication: MYCOSIS FUNGOIDES
     Dosage: 400 MG, QD
     Route: 048
     Dates: start: 20111116, end: 20120412
  2. PREDNISOLONE [Concomitant]
     Indication: MYCOSIS FUNGOIDES
     Dosage: 10 MG, QD
     Route: 048
     Dates: start: 2009
  3. TAKEPRON [Concomitant]
     Indication: PROPHYLAXIS
     Dosage: 15 MG, QD
     Route: 048
  4. FOSAMAC TABLETS 35MG [Concomitant]
     Indication: OSTEOPOROSIS
     Dosage: 35 MG, QW
     Route: 048
  5. ALLELOCK [Concomitant]
     Indication: MYCOSIS FUNGOIDES
     Dosage: 10 MG, BID: FORMULATION:POR
     Route: 048
  6. RINDERON (BETAMETHASONE SODIUM PHOSPHATE) [Concomitant]
     Indication: MYCOSIS FUNGOIDES
     Dosage: 4 MG, QD
     Route: 051
     Dates: start: 20120403, end: 20120404
  7. RINDERON (BETAMETHASONE SODIUM PHOSPHATE) [Concomitant]
     Dosage: 2 MG, QD
     Route: 051
     Dates: start: 20120405, end: 20120406
  8. RINDERON (BETAMETHASONE SODIUM PHOSPHATE) [Concomitant]
     Dosage: 4 MG, QD
     Route: 051
     Dates: start: 20120417, end: 20120419

REACTIONS (9)
  - Pyrexia [Recovered/Resolved]
  - Platelet count decreased [Recovered/Resolved]
  - Pancytopenia [Recovered/Resolved]
  - Cytomegalovirus infection [Recovered/Resolved]
  - Diarrhoea [Recovered/Resolved]
  - Enterocolitis [Recovered/Resolved]
  - Pain [Recovered/Resolved]
  - Gastric ulcer [Unknown]
  - Hypoalbuminaemia [Recovered/Resolved]
